FAERS Safety Report 6371508 (Version 9)
Quarter: 2013Q2

REPORT INFORMATION
  Report Type: Spontaneous
  Country: US (occurrence: US)
  Receive Date: 20070731
  Receipt Date: 20130520
  Transmission Date: 20140414
  Serious: Yes (Death, Hospitalization, Other)
  Sender: FDA-Public Use
  Company Number: PHEH2007US10342

PATIENT
  Age: 51 Year
  Sex: Male

DRUGS (27)
  1. ZOMETA [Suspect]
     Indication: PLASMA CELL MYELOMA
     Dates: start: 200301, end: 200508
  2. AREDIA [Suspect]
     Dosage: 90 MG
  3. AUGMENTIN                               /SCH/ [Concomitant]
     Dosage: 875 MG
     Route: 048
     Dates: start: 20060927
  4. CHLORHEXIDINE DENTAL ^ACO^ [Concomitant]
     Route: 049
  5. THALIDOMIDE [Concomitant]
  6. MORPHINE [Concomitant]
  7. VELCADE [Concomitant]
  8. KADIAN ^KNOLL^ [Concomitant]
  9. NEURONTIN [Concomitant]
  10. LENALIDOMIDE [Concomitant]
  11. VINCRISTINE + ADRIAMYCIN + DEXAMETHASONE [Concomitant]
  12. BLEOMYCIN [Concomitant]
  13. REVLIMID [Concomitant]
  14. FENTANYL [Concomitant]
  15. PROCRIT                            /00909301/ [Concomitant]
  16. PROTONIX ^PHARMACIA^ [Concomitant]
  17. HALCION [Concomitant]
  18. ATIVAN [Concomitant]
  19. MS CONTIN [Concomitant]
  20. ROXANOL [Concomitant]
  21. MELPHALAN [Concomitant]
  22. COMPAZINE [Concomitant]
  23. XANAX [Concomitant]
  24. DILAUDID [Concomitant]
  25. FLUCONAZOLE [Concomitant]
  26. CIPROFLOXACIN [Concomitant]
  27. INAPSINE [Concomitant]

REACTIONS (59)
  - Respiratory distress [Fatal]
  - Dyspnoea [Fatal]
  - Pneumonia [Recovering/Resolving]
  - Atelectasis [Unknown]
  - Acute myocardial infarction [Unknown]
  - Spinal compression fracture [Unknown]
  - Neuropathy peripheral [Unknown]
  - Sepsis [Unknown]
  - Hypoglycaemia [Unknown]
  - Coagulopathy [Unknown]
  - Pancytopenia [Unknown]
  - Osteonecrosis of jaw [Unknown]
  - Pain [Unknown]
  - Infection [Unknown]
  - Deformity [Unknown]
  - Bone disorder [Unknown]
  - Trismus [Unknown]
  - Hypophagia [Unknown]
  - Emotional distress [Unknown]
  - Anxiety [Unknown]
  - Discomfort [Unknown]
  - Anhedonia [Unknown]
  - Oral disorder [Unknown]
  - Mastication disorder [Unknown]
  - Wound dehiscence [Unknown]
  - Oroantral fistula [Unknown]
  - Pain in jaw [Unknown]
  - Jaw fracture [Unknown]
  - Primary sequestrum [Unknown]
  - Loose tooth [Unknown]
  - Life expectancy shortened [Unknown]
  - Hypotension [Unknown]
  - Renal failure acute [Unknown]
  - Rhinorrhoea [Unknown]
  - Multiple sclerosis [Unknown]
  - Subcutaneous abscess [Unknown]
  - Dermal cyst [Unknown]
  - Thrombocytopenia [Unknown]
  - Toothache [Unknown]
  - Accident at home [Unknown]
  - Mucosal inflammation [Unknown]
  - Upper respiratory tract infection [Unknown]
  - Anaemia [Unknown]
  - Musculoskeletal pain [Unknown]
  - Pain in extremity [Unknown]
  - Bone pain [Unknown]
  - Gingival recession [Unknown]
  - Hypoxia [Unknown]
  - Cough [Unknown]
  - Lung infiltration [Unknown]
  - Osteolysis [Unknown]
  - Erythema [Unknown]
  - Ulcer [Unknown]
  - Arthralgia [Unknown]
  - Back pain [Unknown]
  - Hypercalcaemia [Unknown]
  - Chest pain [Unknown]
  - Haemorrhoidal haemorrhage [Unknown]
  - Kyphosis [Unknown]
